FAERS Safety Report 4871925-8 (Version None)
Quarter: 2005Q4

REPORT INFORMATION
  Report Type: 
  Country: None (occurrence: None)
  Receive Date: 20051230
  Receipt Date: 20051220
  Transmission Date: 20060501
  Serious: Yes (Other)
  Sender: FDA-Public Use
  Company Number: 2005172359

PATIENT
  Sex: Female

DRUGS (2)
  1. ESTRADIOL [Suspect]
     Indication: HORMONE REPLACEMENT THERAPY
     Dosage: 2 MG DAILY
     Dates: start: 19960101, end: 20050801
  2. SIMVASTATIN [Concomitant]

REACTIONS (3)
  - DYSPNOEA [None]
  - MENOPAUSAL SYMPTOMS [None]
  - VENTRICULAR EXTRASYSTOLES [None]
